FAERS Safety Report 17499493 (Version 1)
Quarter: 2020Q1

REPORT INFORMATION
  Report Type: Spontaneous
  Country: CN (occurrence: CN)
  Receive Date: 20200305
  Receipt Date: 20200305
  Transmission Date: 20200409
  Serious: Yes (Other)
  Sender: FDA-Public Use
  Company Number: CN-ROCHE-2560566

PATIENT
  Age: 54 Year
  Sex: Female

DRUGS (43)
  1. XELODA [Suspect]
     Active Substance: CAPECITABINE
     Dosage: DAY1-7, XELIRI REGIMEN
     Route: 048
     Dates: start: 20190109
  2. XELODA [Suspect]
     Active Substance: CAPECITABINE
     Dosage: DAY1-7, XELIRI REGIMEN
     Route: 048
     Dates: start: 20190124
  3. IRINOTECAN [Concomitant]
     Active Substance: IRINOTECAN
     Indication: COLORECTAL CANCER
     Dosage: 3 CYCLES
     Route: 065
     Dates: start: 20180827
  4. IRINOTECAN [Concomitant]
     Active Substance: IRINOTECAN
     Dosage: XELIRI REGIMEN
     Route: 065
     Dates: start: 20181109
  5. FLUOROURACIL. [Concomitant]
     Active Substance: FLUOROURACIL
     Indication: COLORECTAL CANCER
  6. XELODA [Suspect]
     Active Substance: CAPECITABINE
     Indication: COLORECTAL CANCER
     Dosage: XELOX REGIMEN, DAY1-14, 2 TABLETS AT MORNING 3 TABLETS AT NIGHT
     Route: 048
     Dates: start: 20180720
  7. OXALIPLATIN. [Suspect]
     Active Substance: OXALIPLATIN
     Indication: COLORECTAL CANCER
     Dosage: XELOX REGIMEN
     Route: 065
     Dates: start: 20180720
  8. OXALIPLATIN. [Suspect]
     Active Substance: OXALIPLATIN
     Indication: METASTASIS
  9. SINTILIMAB. [Concomitant]
     Active Substance: SINTILIMAB
     Route: 065
     Dates: start: 20200219
  10. XELODA [Suspect]
     Active Substance: CAPECITABINE
     Dosage: DAY1-7, XELIRI REGIMEN
     Route: 048
     Dates: start: 20181109
  11. AVASTIN [Suspect]
     Active Substance: BEVACIZUMAB
     Indication: COLORECTAL CANCER
     Dosage: 3 CYCLES
     Route: 065
     Dates: start: 20180827
  12. AVASTIN [Suspect]
     Active Substance: BEVACIZUMAB
     Dosage: DAY1
     Route: 041
     Dates: start: 20190211
  13. IRINOTECAN [Concomitant]
     Active Substance: IRINOTECAN
     Dosage: XELIRI REGIMEN
     Route: 065
     Dates: start: 20190109
  14. SINTILIMAB. [Concomitant]
     Active Substance: SINTILIMAB
     Route: 065
     Dates: start: 20190610
  15. SINTILIMAB. [Concomitant]
     Active Substance: SINTILIMAB
     Route: 065
     Dates: start: 20191203
  16. AVASTIN [Suspect]
     Active Substance: BEVACIZUMAB
     Dosage: DAY1
     Route: 041
     Dates: start: 20181109
  17. IRINOTECAN [Concomitant]
     Active Substance: IRINOTECAN
     Dosage: XELIRI REGIMEN
     Route: 065
     Dates: start: 20190124
  18. SINTILIMAB. [Concomitant]
     Active Substance: SINTILIMAB
     Route: 065
     Dates: start: 20190705
  19. SINTILIMAB. [Concomitant]
     Active Substance: SINTILIMAB
     Route: 065
     Dates: start: 20190802
  20. SINTILIMAB. [Concomitant]
     Active Substance: SINTILIMAB
     Route: 065
     Dates: start: 20190827
  21. SINTILIMAB. [Concomitant]
     Active Substance: SINTILIMAB
     Route: 065
     Dates: start: 20190925
  22. XELODA [Suspect]
     Active Substance: CAPECITABINE
     Indication: METASTASIS
     Dosage: DAY1-7, XELIRI REGIMEN
     Route: 048
     Dates: start: 20180925
  23. XELODA [Suspect]
     Active Substance: CAPECITABINE
     Dosage: DAY1-7, XELIRI REGIMEN
     Route: 048
     Dates: start: 20190322
  24. SINTILIMAB. [Concomitant]
     Active Substance: SINTILIMAB
     Indication: COLORECTAL CANCER
     Route: 065
     Dates: start: 20190313
  25. XELODA [Suspect]
     Active Substance: CAPECITABINE
     Dosage: DAY1-7, XELIRI REGIMEN
     Route: 048
     Dates: start: 20181026
  26. AVASTIN [Suspect]
     Active Substance: BEVACIZUMAB
     Dosage: DAY1
     Route: 041
     Dates: start: 20190124
  27. AVASTIN [Suspect]
     Active Substance: BEVACIZUMAB
     Dosage: DAY1
     Route: 041
     Dates: start: 20190322
  28. IRINOTECAN [Concomitant]
     Active Substance: IRINOTECAN
     Dosage: XELIRI REGIMEN
     Route: 065
     Dates: start: 20190211
  29. IRINOTECAN [Concomitant]
     Active Substance: IRINOTECAN
     Dosage: XELIRI REGIMEN
     Route: 065
     Dates: start: 20190322
  30. SINTILIMAB. [Concomitant]
     Active Substance: SINTILIMAB
     Indication: METASTASIS
     Route: 065
     Dates: start: 20190408
  31. FLUOROURACIL. [Concomitant]
     Active Substance: FLUOROURACIL
     Indication: METASTASIS
  32. AVASTIN [Suspect]
     Active Substance: BEVACIZUMAB
     Indication: METASTASIS
     Dosage: 3 CYCLES
     Route: 065
     Dates: start: 20180911
  33. AVASTIN [Suspect]
     Active Substance: BEVACIZUMAB
     Dosage: DAY1
     Route: 041
     Dates: start: 20180925
  34. AVASTIN [Suspect]
     Active Substance: BEVACIZUMAB
     Dosage: DAY1
     Route: 041
     Dates: start: 20190109
  35. IRINOTECAN [Concomitant]
     Active Substance: IRINOTECAN
     Indication: METASTASIS
     Dosage: 3 CYCLES
     Route: 065
     Dates: start: 20180911
  36. IRINOTECAN [Concomitant]
     Active Substance: IRINOTECAN
     Dosage: XELIRI REGIMEN
     Route: 065
     Dates: start: 20180925
  37. SINTILIMAB. [Concomitant]
     Active Substance: SINTILIMAB
     Route: 065
     Dates: start: 20190506
  38. SINTILIMAB. [Concomitant]
     Active Substance: SINTILIMAB
     Route: 065
     Dates: start: 20191113
  39. SINTILIMAB. [Concomitant]
     Active Substance: SINTILIMAB
     Route: 065
     Dates: start: 20200108
  40. XELODA [Suspect]
     Active Substance: CAPECITABINE
     Dosage: DAY1-7, XELIRI REGIMEN
     Route: 048
     Dates: start: 20190211
  41. AVASTIN [Suspect]
     Active Substance: BEVACIZUMAB
     Dosage: DAY1
     Route: 041
     Dates: start: 20181026
  42. IRINOTECAN [Concomitant]
     Active Substance: IRINOTECAN
     Dosage: XELIRI REGIMEN
     Route: 065
     Dates: start: 20181026
  43. SINTILIMAB. [Concomitant]
     Active Substance: SINTILIMAB
     Route: 065
     Dates: start: 20191016

REACTIONS (4)
  - Drug intolerance [Recovered/Resolved]
  - Oedema mucosal [Unknown]
  - Mouth ulceration [Unknown]
  - Pericardial effusion [Unknown]
